FAERS Safety Report 17441777 (Version 1)
Quarter: 2020Q1

REPORT INFORMATION
  Report Type: Spontaneous
  Country: US (occurrence: US)
  Receive Date: 20200220
  Receipt Date: 20200220
  Transmission Date: 20200409
  Serious: Yes (Death, Life-Threatening, Other)
  Sender: FDA-Public Use
  Company Number: US-AMGEN-USASP2020025339

PATIENT

DRUGS (3)
  1. FILGRASTIM [Suspect]
     Active Substance: FILGRASTIM
     Indication: PROPHYLAXIS
     Dosage: 5 MICROGRAM/KILOGRAM, QD (DAY 3 UNTIL DAY 12))
     Route: 058
  2. DOXORUBICIN [Concomitant]
     Active Substance: DOXORUBICIN
     Indication: ENDOMETRIAL CANCER
     Dosage: 60 MILLIGRAM/SQ. METER
     Route: 042
  3. DOXORUBICIN [Concomitant]
     Active Substance: DOXORUBICIN
     Dosage: 50 MILLIGRAM/SQ. METER
     Route: 040

REACTIONS (20)
  - Death [Fatal]
  - Pyrexia [Unknown]
  - Neurotoxicity [Unknown]
  - Wrong technique in product usage process [Unknown]
  - Ejection fraction decreased [Unknown]
  - Sepsis [Fatal]
  - Anaemia [Unknown]
  - Gastrointestinal disorder [Unknown]
  - Mucosal inflammation [Unknown]
  - Renal failure [Fatal]
  - Acute myelomonocytic leukaemia [Fatal]
  - Metabolic disorder [Unknown]
  - Neuropathy peripheral [Unknown]
  - Haematotoxicity [Unknown]
  - Neutropenic sepsis [Fatal]
  - Herpes zoster [Fatal]
  - Granulocytopenia [Unknown]
  - Thrombocytopenia [Unknown]
  - Pain [Unknown]
  - Cardiotoxicity [Unknown]
